FAERS Safety Report 5558814-0 (Version None)
Quarter: 2007Q4

REPORT INFORMATION
  Report Type: 
  Country: None (occurrence: None)
  Receive Date: 20071214
  Receipt Date: 20071207
  Transmission Date: 20080405
  Serious: Yes (Death)
  Sender: FDA-Public Use
  Company Number: BE-PFIZER INC-2007103649

PATIENT
  Age: 74 Year
  Sex: Male
  Weight: 64 kg

DRUGS (4)
  1. GENOTONORM [Suspect]
     Indication: HYPOPITUITARISM
     Route: 058
     Dates: start: 20050712, end: 20061212
  2. HYDROCORTISON [Concomitant]
     Dosage: DAILY DOSE:30MG
     Route: 048
  3. LEVOTHYROXINE SODIUM [Concomitant]
     Dosage: DAILY DOSE:100MG
     Route: 048
     Dates: start: 20050207
  4. TESTOSTERONE [Concomitant]
     Dosage: DAILY DOSE:250MG
     Route: 030
     Dates: start: 20050620

REACTIONS (1)
  - GASTRIC CANCER [None]
